FAERS Safety Report 9217745 (Version 1)
Quarter: 2013Q2

REPORT INFORMATION
  Report Type: Spontaneous
  Country: GB (occurrence: GB)
  Receive Date: 20130408
  Receipt Date: 20130408
  Transmission Date: 20140414
  Serious: Yes (Other)
  Sender: FDA-Public Use
  Company Number: GB-TEVA-396229ISR

PATIENT
  Age: 26 Year
  Sex: Female
  Weight: 49.43 kg

DRUGS (1)
  1. PROPRANOLOL [Suspect]
     Indication: ANXIETY
     Route: 048
     Dates: start: 20120501, end: 20130301

REACTIONS (1)
  - Hypoaesthesia [Recovered/Resolved]
